FAERS Safety Report 8085043-1 (Version None)
Quarter: 2012Q1

REPORT INFORMATION
  Report Type: 
  Country: None (occurrence: None)
  Receive Date: 20120128
  Receipt Date: 20110314
  Transmission Date: 20120608
  Serious: No
  Sender: FDA-Public Use
  Company Number: US-ABBOTT-11P-163-0711233-00

PATIENT
  Age: 54 Year
  Sex: Male

DRUGS (2)
  1. HUMIRA [Suspect]
     Indication: PSORIASIS
     Dates: start: 20101201, end: 20110302
  2. AMLODIPINE [Concomitant]
     Indication: HYPERTENSION

REACTIONS (4)
  - PSORIASIS [None]
  - DRUG INEFFECTIVE [None]
  - EATING DISORDER [None]
  - SWELLING FACE [None]
